FAERS Safety Report 5403586-3 (Version None)
Quarter: 2007Q3

REPORT INFORMATION
  Report Type: 
  Country: None (occurrence: None)
  Receive Date: 20070802
  Receipt Date: 20070725
  Transmission Date: 20080115
  Serious: Yes (Other)
  Sender: FDA-Public Use
  Company Number: PHBS2007IT12540

PATIENT
  Age: 11 Year
  Sex: Female

DRUGS (5)
  1. CYCLOSPORINE [Suspect]
     Indication: HEART TRANSPLANT
     Dosage: 5.6 MG/KG/DAY (310 MG)
     Route: 048
  2. CYCLOSPORINE [Suspect]
     Dosage: 10.9 MG/KG/DAY (600 MG)
     Route: 048
  3. CYCLOSPORINE [Suspect]
     Dosage: 6.8 MG/KG/DAY (340 MG)
     Route: 048
  4. ASPIRIN [Concomitant]
  5. AZATHIOPRINE [Concomitant]

REACTIONS (6)
  - ALTERED STATE OF CONSCIOUSNESS [None]
  - EPILEPSY [None]
  - GRAND MAL CONVULSION [None]
  - HALLUCINATION, VISUAL [None]
  - PARTIAL SEIZURES WITH SECONDARY GENERALISATION [None]
  - RETROGRADE AMNESIA [None]
